FAERS Safety Report 7397306-3 (Version None)
Quarter: 2011Q1

REPORT INFORMATION
  Report Type: 
  Country: None (occurrence: None)
  Receive Date: 20110328
  Receipt Date: 20110311
  Transmission Date: 20110831
  Serious: Yes (Other)
  Sender: FDA-Public Use
  Company Number: 2011P1004507

PATIENT
  Age: 75 Year
  Sex: Female

DRUGS (12)
  1. ZOLPIDEM [Concomitant]
  2. HYDROCHLOROTHIAZIDE AND LOSARTAN [Concomitant]
  3. NIFEREX-150 (IRON POLYSACCHARIDE) [Concomitant]
  4. CITALOPRAM [Concomitant]
  5. CEPHALEXIN [Concomitant]
  6. CRESTOR [Concomitant]
  7. WARFARIN SODIUM [Suspect]
     Indication: THROMBOSIS PROPHYLAXIS
     Dosage: 25 MG;X1;PO; 5 MG;BID;PO; 2.5 MG;BID;PO
     Route: 048
     Dates: start: 20110201, end: 20110201
  8. WARFARIN SODIUM [Suspect]
     Indication: THROMBOSIS PROPHYLAXIS
     Dosage: 25 MG;X1;PO; 5 MG;BID;PO; 2.5 MG;BID;PO
     Route: 048
     Dates: start: 20110217, end: 20110304
  9. WARFARIN SODIUM [Suspect]
     Indication: THROMBOSIS PROPHYLAXIS
     Dosage: 25 MG;X1;PO; 5 MG;BID;PO; 2.5 MG;BID;PO
     Route: 048
     Dates: start: 20110212, end: 20110215
  10. DILAUDID [Concomitant]
  11. PRAMIPEXOLE DIHYDROCHLORIDE [Concomitant]
  12. PRADAXA (DABIGATRAN ETEXILATE MESYLATE) (NO. PREF. NAME) [Suspect]
     Dosage: 150 MG
     Dates: start: 20110304

REACTIONS (7)
  - INCORRECT DOSE ADMINISTERED [None]
  - ASTHENIA [None]
  - INTERNATIONAL NORMALISED RATIO INCREASED [None]
  - DRUG HYPERSENSITIVITY [None]
  - HYPOAESTHESIA [None]
  - FEELING OF BODY TEMPERATURE CHANGE [None]
  - HYPOAESTHESIA FACIAL [None]
